FAERS Safety Report 5611439-0 (Version None)
Quarter: 2008Q1

REPORT INFORMATION
  Report Type: 
  Country: None (occurrence: None)
  Receive Date: 20080201
  Receipt Date: 20080121
  Transmission Date: 20080703
  Serious: Yes (Other)
  Sender: FDA-Public Use
  Company Number: US-ELI_LILLY_AND_COMPANY-US200710000884

PATIENT
  Age: 80 Year
  Sex: Female

DRUGS (4)
  1. HUMALOG [Suspect]
     Dates: start: 20030101
  2. LANTUS [Concomitant]
  3. ACTOS [Concomitant]
  4. ACTONEL [Concomitant]

REACTIONS (3)
  - ANOGENITAL DYSPLASIA [None]
  - BLOOD GLUCOSE INCREASED [None]
  - COLONIC POLYP [None]
